FAERS Safety Report 8202270-0 (Version None)
Quarter: 2012Q1

REPORT INFORMATION
  Report Type: 
  Country: None (occurrence: None)
  Receive Date: 20120312
  Receipt Date: 20120305
  Transmission Date: 20120608
  Serious: Yes (Hospitalization, Other)
  Sender: FDA-Public Use
  Company Number: US-BAYER-2012-022231

PATIENT
  Age: 28 Year
  Sex: Female
  Weight: 84.807 kg

DRUGS (3)
  1. ATIVAN [Concomitant]
  2. PERCOCET [Concomitant]
     Indication: PAIN
  3. YAZ [Suspect]
     Route: 048

REACTIONS (7)
  - PULMONARY EMBOLISM [None]
  - PAIN [None]
  - EMOTIONAL DISTRESS [None]
  - INJURY [None]
  - ANXIETY [None]
  - PULMONARY HYPERTENSION [None]
  - GENERAL PHYSICAL HEALTH DETERIORATION [None]
